FAERS Safety Report 9597023 (Version 3)
Quarter: 2014Q2

REPORT INFORMATION
  Report Type: Report from Study
  Country: DE (occurrence: DE)
  Receive Date: 20131004
  Receipt Date: 20140609
  Transmission Date: 20141212
  Serious: Yes (Hospitalization)
  Sender: FDA-Public Use
  Company Number: DE-ABBVIE-13P-062-1154206-00

PATIENT
  Age: 43 Year
  Sex: Male
  Weight: 88 kg

DRUGS (10)
  1. HUMIRA [Suspect]
     Indication: CROHN^S DISEASE
     Route: 058
     Dates: start: 20100308, end: 201212
  2. HUMIRA [Suspect]
     Route: 058
     Dates: start: 201302
  3. COLESTYRAMINE [Suspect]
     Indication: PRODUCT USED FOR UNKNOWN INDICATION
     Route: 048
  4. QUANTALAN [Concomitant]
     Indication: BILE ACID MALABSORPTION
     Dosage: 1-0-1
     Route: 048
     Dates: start: 200908
  5. FERINJECT [Concomitant]
     Indication: IRON DEFICIENCY
     Route: 042
     Dates: start: 201307, end: 201307
  6. FERINJECT [Concomitant]
     Dates: start: 201405, end: 201405
  7. MCP [Concomitant]
     Indication: NAUSEA
     Route: 048
     Dates: start: 200908
  8. METHOTREXATE [Concomitant]
     Indication: PRODUCT USED FOR UNKNOWN INDICATION
     Route: 058
     Dates: start: 201309, end: 201401
  9. FOLIC ACID [Concomitant]
     Indication: PRODUCT USED FOR UNKNOWN INDICATION
  10. COTRIM [Concomitant]
     Indication: PRODUCT USED FOR UNKNOWN INDICATION

REACTIONS (2)
  - Intestinal anastomosis [Recovered/Resolved]
  - Drug effect decreased [Unknown]
